FAERS Safety Report 5485982-1 (Version None)
Quarter: 2007Q4

REPORT INFORMATION
  Report Type: 
  Country: None (occurrence: None)
  Receive Date: 20071015
  Receipt Date: 20071010
  Transmission Date: 20080405
  Serious: Yes (Hospitalization)
  Sender: FDA-Public Use
  Company Number: AU-MERCK-0710AUS00072

PATIENT
  Age: 64 Year
  Sex: Female
  Weight: 43 kg

DRUGS (11)
  1. EMEND [Suspect]
     Route: 048
     Dates: start: 20070305, end: 20070305
  2. EMEND [Suspect]
     Route: 048
     Dates: start: 20070306, end: 20070307
  3. IFOSFAMIDE [Suspect]
     Route: 051
     Dates: start: 20070305, end: 20070309
  4. MESNA [Suspect]
     Route: 065
     Dates: start: 20070305, end: 20070310
  5. TROPISETRON HYDROCHLORIDE [Suspect]
     Route: 042
     Dates: start: 20070305, end: 20070308
  6. DEXAMETHASONE [Suspect]
     Route: 048
     Dates: start: 20070305, end: 20070306
  7. DEXAMETHASONE [Suspect]
     Route: 042
     Dates: start: 20070305, end: 20070308
  8. METOCLOPRAMIDE HYDROCHLORIDE [Concomitant]
     Route: 065
  9. PANTOPRAZOLE SODIUM [Concomitant]
     Route: 065
  10. ALBUTEROL SULFATE [Concomitant]
     Route: 065
  11. PEGFILGRASTIM [Concomitant]
     Route: 058
     Dates: start: 20070310, end: 20070310

REACTIONS (3)
  - HYPOAESTHESIA [None]
  - MUSCULAR WEAKNESS [None]
  - SENSATION OF HEAVINESS [None]
